FAERS Safety Report 7901965-3 (Version None)
Quarter: 2011Q4

REPORT INFORMATION
  Report Type: 
  Country: None (occurrence: None)
  Receive Date: 20111108
  Receipt Date: 20111028
  Transmission Date: 20120403
  Serious: Yes (Hospitalization, Other)
  Sender: FDA-Public Use
  Company Number: US-BAYER-2011-107022

PATIENT
  Age: 30 Year
  Sex: Female
  Weight: 49.433 kg

DRUGS (6)
  1. KLONOPIN [Concomitant]
  2. YAZ [Suspect]
     Indication: ORAL CONTRACEPTION
     Dosage: UNK
     Dates: start: 20090701, end: 20110101
  3. ZOFRAN [Concomitant]
  4. YAZ [Suspect]
     Indication: ACNE
  5. DROSPIRENONE AND ETHINYL ESTRADIOL [Suspect]
     Indication: ORAL CONTRACEPTION
     Dosage: UNK
     Dates: start: 20090701, end: 20110101
  6. DARVOCET [Concomitant]

REACTIONS (7)
  - CHOLELITHIASIS [None]
  - DIARRHOEA [None]
  - ABDOMINAL DISTENSION [None]
  - ABDOMINAL PAIN [None]
  - CHOLECYSTITIS CHRONIC [None]
  - VOMITING [None]
  - NAUSEA [None]
